FAERS Safety Report 25718965 (Version 2)
Quarter: 2025Q3

REPORT INFORMATION
  Report Type: Report from Study
  Country: EU (occurrence: EU)
  Receive Date: 20250823
  Receipt Date: 20250826
  Transmission Date: 20251021
  Serious: Yes (Hospitalization)
  Sender: ABBVIE
  Company Number: EU-ABBVIE-6427623

PATIENT
  Age: 85 Year
  Sex: Female

DRUGS (8)
  1. FOSCARBIDOPA\FOSLEVODOPA [Suspect]
     Active Substance: FOSCARBIDOPA\FOSLEVODOPA
     Indication: Parkinson^s disease
     Route: 058
     Dates: start: 20240702
  2. FOSCARBIDOPA\FOSLEVODOPA [Suspect]
     Active Substance: FOSCARBIDOPA\FOSLEVODOPA
     Route: 058
  3. FOSCARBIDOPA\FOSLEVODOPA [Suspect]
     Active Substance: FOSCARBIDOPA\FOSLEVODOPA
     Route: 058
     Dates: start: 2025
  4. AMLODIPINE BESYLATE [Concomitant]
     Active Substance: AMLODIPINE BESYLATE
     Indication: Product used for unknown indication
     Route: 048
  5. POTASSIUM CHLORIDE [Concomitant]
     Active Substance: POTASSIUM CHLORIDE
     Indication: Product used for unknown indication
     Route: 048
  6. L-THYROXIN BC [Concomitant]
     Indication: Product used for unknown indication
     Route: 048
  7. BENSERAZIDE HYDROCHLORIDE\LEVODOPA [Concomitant]
     Active Substance: BENSERAZIDE HYDROCHLORIDE\LEVODOPA
     Indication: Product used for unknown indication
  8. MOVICOL liquid orange [Concomitant]
     Indication: Product used for unknown indication

REACTIONS (17)
  - Abdominal wall abscess [Unknown]
  - Cystitis [Unknown]
  - Akinesia [Recovered/Resolved]
  - Hypertension [Unknown]
  - Hypothyroidism [Unknown]
  - Hypophagia [Unknown]
  - Pollakiuria [Unknown]
  - Dysuria [Unknown]
  - Tremor [Unknown]
  - Dehydration [Unknown]
  - Emphysema [Unknown]
  - Urinary tract infection [Unknown]
  - Delusion [Unknown]
  - Hallucination [Unknown]
  - Hypokinesia [Unknown]
  - Dementia [Unknown]
  - Constipation [Unknown]

NARRATIVE: CASE EVENT DATE: 20250805
